FAERS Safety Report 8461233-0 (Version None)
Quarter: 2012Q2

REPORT INFORMATION
  Report Type: 
  Country: None (occurrence: None)
  Receive Date: 20120619
  Receipt Date: 20120619
  Transmission Date: 20120825
  Serious: Yes (Hospitalization, Other)
  Sender: FDA-Public Use
  Company Number: None

PATIENT
  Sex: Male

DRUGS (6)
  1. BABY ASPRIIN [Concomitant]
  2. NITROFURANTOIN [Suspect]
     Dosage: 50 MG ONCE A DAY PO
     Route: 048
  3. PRAVASTATIN [Concomitant]
  4. FLOMAX [Concomitant]
  5. PLAVIX [Concomitant]
  6. AVODART [Concomitant]

REACTIONS (6)
  - VOMITING [None]
  - DYSSTASIA [None]
  - NO THERAPEUTIC RESPONSE [None]
  - GAIT DISTURBANCE [None]
  - DIZZINESS [None]
  - NAUSEA [None]
